FAERS Safety Report 21595729 (Version 1)
Quarter: 2022Q4

REPORT INFORMATION
  Report Type: Spontaneous
  Country: GB (occurrence: GB)
  Receive Date: 20221115
  Receipt Date: 20221115
  Transmission Date: 20230112
  Serious: Yes (Other)
  Sender: FDA-Public Use
  Company Number: None

PATIENT
  Age: 24 Year
  Sex: Female
  Weight: 51 kg

DRUGS (3)
  1. TRAZODONE [Suspect]
     Active Substance: TRAZODONE HYDROCHLORIDE
     Indication: Product used for unknown indication
     Dosage: INITIALLY ONE PER DAY, BUILD UP BY 25% IF NEEDE..
     Dates: start: 20220923
  2. DESOGESTREL [Concomitant]
     Active Substance: DESOGESTREL
     Dates: start: 20220920, end: 20221018
  3. MIRTAZAPINE [Concomitant]
     Active Substance: MIRTAZAPINE
     Dosage: AT NIGHT
     Dates: start: 20211206

REACTIONS (1)
  - Muscular weakness [Unknown]
